FAERS Safety Report 4994486-1 (Version None)
Quarter: 2006Q2

REPORT INFORMATION
  Report Type: 
  Country: None (occurrence: None)
  Receive Date: 20060505
  Receipt Date: 20051215
  Transmission Date: 20061013
  Serious: Yes (Hospitalization)
  Sender: FDA-Public Use
  Company Number: US-MERCK-0512USA02473

PATIENT
  Age: 61 Year
  Sex: Male
  Weight: 109 kg

DRUGS (8)
  1. VIOXX [Suspect]
     Indication: ARTHRALGIA
     Route: 048
     Dates: start: 20040401, end: 20040914
  2. VIOXX [Suspect]
     Indication: JOINT SWELLING
     Route: 048
     Dates: start: 20040401, end: 20040914
  3. LIPITOR [Concomitant]
     Route: 048
  4. PROZAC [Concomitant]
     Route: 048
  5. TEVETEN [Concomitant]
     Route: 048
  6. CLARITIN [Concomitant]
     Route: 048
  7. ASPIRIN [Concomitant]
     Route: 048
  8. AMOXICILLIN [Concomitant]
     Route: 048

REACTIONS (5)
  - ANGINA UNSTABLE [None]
  - BLOOD CHOLESTEROL INCREASED [None]
  - CARDIAC DISORDER [None]
  - CORONARY ARTERY DISEASE [None]
  - CORONARY ARTERY OCCLUSION [None]
